FAERS Safety Report 13422782 (Version 1)
Quarter: 2017Q2

REPORT INFORMATION
  Report Type: Spontaneous
  Country: US (occurrence: US)
  Receive Date: 20170410
  Receipt Date: 20170410
  Transmission Date: 20170830
  Serious: Yes (Congenital Anomaly, Other)
  Sender: FDA-Public Use
  Company Number: PHEH2017US009913

PATIENT

DRUGS (1)
  1. ZOFRAN [Suspect]
     Active Substance: ONDANSETRON HYDROCHLORIDE
     Indication: FOETAL EXPOSURE DURING PREGNANCY
     Route: 064

REACTIONS (14)
  - VACTERL syndrome [Unknown]
  - Injury [Unknown]
  - Congenital anomaly [Unknown]
  - Kidney malformation [Unknown]
  - Foetal exposure during pregnancy [Unknown]
  - Pain [Unknown]
  - Anhedonia [Unknown]
  - Bone deformity [Unknown]
  - Tracheal fistula [Unknown]
  - Heart disease congenital [Unknown]
  - Cardiac murmur [Unknown]
  - Anxiety [Unknown]
  - Oesophageal atresia [Unknown]
  - Bone development abnormal [Unknown]
